FAERS Safety Report 4870136-X (Version None)
Quarter: 2005Q4

REPORT INFORMATION
  Report Type: 
  Country: None (occurrence: None)
  Receive Date: 20051227
  Receipt Date: 20051221
  Transmission Date: 20060501
  Serious: Yes (Death)
  Sender: FDA-Public Use
  Company Number: 2005-136042-NL

PATIENT
  Age: 45 Year
  Sex: Male

DRUGS (6)
  1. MIRTAZAPINE [Suspect]
     Indication: BIPOLAR I DISORDER
     Dosage: DF, ORAL
     Route: 048
     Dates: start: 20041227, end: 20041227
  2. MEPROMAZINE [Suspect]
     Indication: SCHIZOPHRENIA
     Dosage: DF, ORAL
     Route: 048
     Dates: start: 20041227, end: 20041227
  3. CYAMEMAZINE [Suspect]
     Indication: SCHIZOPHRENIA
     Dosage: DF, ORAL
     Route: 048
     Dates: start: 20041227, end: 20041227
  4. CLOMIPRAMINE HYDROCHLORIDE [Suspect]
     Indication: BIPOLAR I DISORDER
     Dosage: DF, ORAL
     Route: 048
     Dates: start: 20041227, end: 20041227
  5. NORDAZEPAM [Suspect]
     Indication: ANXIETY
     Dosage: DF, ORAL
     Route: 048
     Dates: start: 20041227, end: 20041227
  6. RISPERIDONE [Suspect]
     Indication: SCHIZOPHRENIA
     Dosage: DF, ORAL
     Route: 048
     Dates: start: 20041227, end: 20041227

REACTIONS (3)
  - COMPLETED SUICIDE [None]
  - DRUG TOXICITY [None]
  - INJURY ASPHYXIATION [None]
